FAERS Safety Report 17155627 (Version 1)
Quarter: 2019Q4

REPORT INFORMATION
  Report Type: Spontaneous
  Country: ES (occurrence: ES)
  Receive Date: 20191215
  Receipt Date: 20191215
  Transmission Date: 20200122
  Serious: Yes (Other)
  Sender: FDA-Public Use
  Company Number: ES-SA-2019SA342586

PATIENT
  Sex: Male
  Weight: 81 kg

DRUGS (1)
  1. LANTUS [Suspect]
     Active Substance: INSULIN GLARGINE
     Indication: TYPE 2 DIABETES MELLITUS
     Dosage: UNK
     Route: 058

REACTIONS (1)
  - Cataract [Recovered/Resolved]
